FAERS Safety Report 6929195-2 (Version None)
Quarter: 2010Q3

REPORT INFORMATION
  Report Type: 
  Country: None (occurrence: None)
  Receive Date: 20100812
  Receipt Date: 20100729
  Transmission Date: 20110219
  Serious: Yes (Hospitalization, Other)
  Sender: FDA-Public Use
  Company Number: ALD1-GB-2010-0040

PATIENT
  Sex: Female

DRUGS (8)
  1. METHYLDOPA [Suspect]
     Indication: DRUG EXPOSURE DURING PREGNANCY
     Dosage: 250 MG (3 IN 1 D), 500 MG (4 IN 1 D) TRANSPLACENTAL
     Route: 064
  2. HYDRALAZINE (HYDRALAZINE) (HYDRALAZINE) [Suspect]
     Indication: DRUG EXPOSURE DURING PREGNANCY
     Dosage: TRANSPLACENTAL
     Route: 064
  3. LABETALOL (LABETALOL) (LABETALOL) [Suspect]
     Indication: DRUG EXPOSURE DURING PREGNANCY
     Dosage: 100 MG (2 IN 1 D) TRANSPLACENTAL
     Route: 064
  4. NIFEDIPINE [Suspect]
     Indication: DRUG EXPOSURE DURING PREGNANCY
     Dosage: TRANSPLACENTAL
     Route: 064
  5. ACETYLSALICYLIC ACID SRT [Concomitant]
  6. BETAMETHASONE (BETAMETHASONE) (BETAMETHASONE) [Concomitant]
  7. DELTEPARIN SODIUM (HEPARIN-FRACTION, SODIUM SALT) (HEPARIN-FRACTION, S [Concomitant]
  8. PHOSPHOLIPIDS (PHOSPHOLIPIDS) (PHOSPHOLIPIDS) [Concomitant]

REACTIONS (5)
  - BLOOD GLUCOSE FLUCTUATION [None]
  - FOETAL GROWTH RESTRICTION [None]
  - HYPOGLYCAEMIA NEONATAL [None]
  - MATERNAL DRUGS AFFECTING FOETUS [None]
  - NO THERAPEUTIC RESPONSE [None]
